FAERS Safety Report 25424093 (Version 1)
Quarter: 2025Q2

REPORT INFORMATION
  Report Type: Spontaneous
  Country: US (occurrence: None)
  Receive Date: 20250610
  Receipt Date: 20250610
  Transmission Date: 20250717
  Serious: Yes (Disabling)
  Sender: FDA-CTU
  Company Number: None

PATIENT
  Age: 32 Year
  Sex: Male
  Weight: 76.5 kg

DRUGS (2)
  1. LEXAPRO [Suspect]
     Active Substance: ESCITALOPRAM OXALATE
     Indication: Anxiety
  2. BALSALAZIDE [Concomitant]
     Active Substance: BALSALAZIDE

REACTIONS (26)
  - Anxiety [None]
  - Depression [None]
  - Overweight [None]
  - Erectile dysfunction [None]
  - Emotional distress [None]
  - Therapy interrupted [None]
  - Influenza like illness [None]
  - Nerve injury [None]
  - Anhedonia [None]
  - Brain fog [None]
  - Stress [None]
  - Communication disorder [None]
  - Diarrhoea haemorrhagic [None]
  - Mucous stools [None]
  - Colitis ulcerative [None]
  - Autoimmune thyroiditis [None]
  - Anti-thyroid antibody increased [None]
  - Tri-iodothyronine decreased [None]
  - Malaise [None]
  - Fatigue [None]
  - Withdrawal syndrome [None]
  - Drug intolerance [None]
  - Nervous system disorder [None]
  - Feeling abnormal [None]
  - Neuralgia [None]
  - Blood testosterone decreased [None]

NARRATIVE: CASE EVENT DATE: 20221015
